FAERS Safety Report 17879912 (Version 3)
Quarter: 2021Q1

REPORT INFORMATION
  Report Type: Spontaneous
  Country: US (occurrence: US)
  Receive Date: 20200610
  Receipt Date: 20210201
  Transmission Date: 20210419
  Serious: No
  Sender: FDA-Public Use
  Company Number: US-PFIZER INC-2020225808

PATIENT
  Age: 82 Year
  Sex: Female

DRUGS (1)
  1. LYRICA [Suspect]
     Active Substance: PREGABALIN
     Dosage: 25 MG, 1X/DAY (TAKE 1 CAP BY MOUTH EVERY NIGHT AT BEDTIME)
     Route: 048

REACTIONS (2)
  - Hypoacusis [Unknown]
  - Mobility decreased [Unknown]
